FAERS Safety Report 5736988-6 (Version None)
Quarter: 2008Q2

REPORT INFORMATION
  Report Type: 
  Country: None (occurrence: None)
  Receive Date: 20080513
  Receipt Date: 20080513
  Transmission Date: 20081010
  Serious: Yes (Hospitalization)
  Sender: FDA-Public Use
  Company Number: None

PATIENT
  Age: 92 Year
  Sex: Female

DRUGS (1)
  1. OXAPROZIN [Suspect]
     Indication: ARTHRITIS
     Dosage: 600MG DAILY PO
     Route: 048

REACTIONS (7)
  - ANAEMIA [None]
  - CHEST PAIN [None]
  - DIZZINESS [None]
  - DUODENAL ULCER HAEMORRHAGE [None]
  - HYPOTENSION [None]
  - MELAENA [None]
  - REFUSAL OF TREATMENT BY RELATIVE [None]
